FAERS Safety Report 5093466-8 (Version None)
Quarter: 2006Q3

REPORT INFORMATION
  Report Type: 
  Country: None (occurrence: None)
  Receive Date: 20060828
  Receipt Date: 20060816
  Transmission Date: 20061208
  Serious: Yes (Death, Other)
  Sender: FDA-Public Use
  Company Number: 2006-BP-09666RO

PATIENT
  Age: 70 Year
  Sex: Female

DRUGS (1)
  1. TAMOXIFEN CITRATE [Suspect]
     Indication: BREAST CANCER
     Dosage: 20 MG/DAY X 3 YEARS, PO
     Route: 048
     Dates: start: 19840101, end: 19870101

REACTIONS (5)
  - METASTASES TO LUNG [None]
  - REFUSAL OF TREATMENT BY PATIENT [None]
  - UTERINE CANCER [None]
  - VAGINAL CANCER RECURRENT [None]
  - VAGINAL HAEMORRHAGE [None]
